FAERS Safety Report 25954959 (Version 1)
Quarter: 2025Q4

REPORT INFORMATION
  Report Type: Report from Study
  Country: PK (occurrence: PK)
  Receive Date: 20251024
  Receipt Date: 20251024
  Transmission Date: 20260118
  Serious: Yes (Hospitalization)
  Sender: ROCHE
  Company Number: PK-ROCHE-10000412264

PATIENT
  Age: 74 Year
  Sex: Male

DRUGS (1)
  1. TECENTRIQ [Suspect]
     Active Substance: ATEZOLIZUMAB
     Indication: Non-small cell lung cancer
     Dosage: INTERVAL: 3 WEEK
     Route: 042
     Dates: start: 20250521

REACTIONS (4)
  - Oxygen saturation decreased [Unknown]
  - Pyrexia [Unknown]
  - General physical health deterioration [Unknown]
  - Feeding disorder [Unknown]

NARRATIVE: CASE EVENT DATE: 20251007
